FAERS Safety Report 4668748-1 (Version None)
Quarter: 2005Q2

REPORT INFORMATION
  Report Type: 
  Country: None (occurrence: None)
  Receive Date: 20050519
  Receipt Date: 20050511
  Transmission Date: 20051028
  Serious: Yes (Other)
  Sender: FDA-Public Use
  Company Number: 2005073888

PATIENT
  Age: 79 Year
  Sex: Female
  Weight: 29.9374 kg

DRUGS (4)
  1. NEURONTIN [Suspect]
     Indication: AUTONOMIC NEUROPATHY
     Dosage: 300 MG (300 MG, 1 IN 1 D), ORAL
     Route: 048
     Dates: end: 20050501
  2. WARFARIN SODIUM [Suspect]
     Indication: ATRIAL FIBRILLATION
     Dosage: 2 MG (2 MG, 1 IN 1 D), ORAL
     Route: 048
     Dates: end: 20050501
  3. DIGOXIN [Concomitant]
  4. ATENOLOL [Concomitant]

REACTIONS (1)
  - HAEMORRHAGE INTRACRANIAL [None]
